FAERS Safety Report 18162714 (Version 2)
Quarter: 2020Q4

REPORT INFORMATION
  Report Type: Spontaneous
  Country: US (occurrence: US)
  Receive Date: 20200818
  Receipt Date: 20201106
  Transmission Date: 20210113
  Serious: Yes (Other)
  Sender: FDA-Public Use
  Company Number: US-PFIZER INC-2020319122

PATIENT
  Age: 67 Year
  Sex: Female
  Weight: 50 kg

DRUGS (2)
  1. PREGABALIN. [Suspect]
     Active Substance: PREGABALIN
     Indication: PARAESTHESIA
     Dosage: 2 DF, DAILY (2 TABLETS A DAY )
  2. PREGABALIN. [Suspect]
     Active Substance: PREGABALIN
     Indication: FIBROMYALGIA
     Dosage: 3 DF, DAILY (3 TABLETS A DAY)

REACTIONS (9)
  - Taste disorder [Unknown]
  - Pneumonia [Recovered/Resolved with Sequelae]
  - Drug ineffective [Unknown]
  - Dehydration [Recovered/Resolved]
  - Weight decreased [Unknown]
  - Malaise [Unknown]
  - Fatigue [Unknown]
  - Memory impairment [Unknown]
  - Parosmia [Unknown]

NARRATIVE: CASE EVENT DATE: 202006
